FAERS Safety Report 7455257-X (Version None)
Quarter: 2011Q2

REPORT INFORMATION
  Report Type: 
  Country: None (occurrence: None)
  Receive Date: 20110503
  Receipt Date: 20110420
  Transmission Date: 20111010
  Serious: Yes (Hospitalization, Other)
  Sender: FDA-Public Use
  Company Number: US-ELI_LILLY_AND_COMPANY-US201010004246

PATIENT
  Sex: Female

DRUGS (16)
  1. LASIX [Concomitant]
     Dosage: 40 MG, BID
  2. VITAMIN D [Concomitant]
     Dosage: 2000 U, TID
  3. CALCIUM WITH VITAMIN D             /00944201/ [Concomitant]
     Dosage: UNK, BID
  4. FISH OIL [Concomitant]
     Dosage: 1000 MG, BID
  5. CELEBREX [Concomitant]
     Dosage: 200 MG, BID
  6. OMEPRAZOLE [Concomitant]
     Dosage: 20 MG, BID
  7. LORATADINE [Concomitant]
     Dosage: 10 MG, QD
  8. FORTEO [Suspect]
     Indication: OSTEOPOROSIS
     Dosage: 20 UG, DAILY (1/D)
     Route: 065
     Dates: start: 20101101
  9. FORTEO [Suspect]
     Dosage: 20 UG, QD
  10. TRAMADOL [Concomitant]
     Dosage: 50 MG, EVERY 6 HRS
  11. IRON [Concomitant]
     Dosage: 65 MG, QD
  12. MULTI-VITAMIN [Concomitant]
     Dosage: UNK, BID
  13. LYRICA [Concomitant]
     Dosage: 150 MG, TID
  14. METHOTREXATE [Concomitant]
     Dosage: 2.5 MG, UNK
  15. FOLIC ACID [Concomitant]
     Dosage: 400 MG, QD
  16. ASPIRIN [Concomitant]
     Dosage: 81 MG, QD

REACTIONS (18)
  - CARDIAC FAILURE CONGESTIVE [None]
  - NASOPHARYNGITIS [None]
  - ESCHERICHIA INFECTION [None]
  - FALL [None]
  - ACCIDENTAL OVERDOSE [None]
  - DRUG DOSE OMISSION [None]
  - PRODUCTIVE COUGH [None]
  - FATIGUE [None]
  - STRESS [None]
  - PNEUMONIA [None]
  - TREMOR [None]
  - NEPHROLITHIASIS [None]
  - LUNG INFECTION [None]
  - MEMORY IMPAIRMENT [None]
  - RHINORRHOEA [None]
  - TRANSFUSION [None]
  - SPUTUM DISCOLOURED [None]
  - MALAISE [None]
